FAERS Safety Report 10329393 (Version 2)
Quarter: 2014Q3

REPORT INFORMATION
  Report Type: Spontaneous
  Country: US (occurrence: US)
  Receive Date: 20140721
  Receipt Date: 20140826
  Transmission Date: 20150326
  Serious: No
  Sender: FDA-Public Use
  Company Number: US-009507513-1406USA012184

PATIENT
  Age: 55 Year
  Sex: Female
  Weight: 53.61 kg

DRUGS (2)
  1. MIRALAX [Suspect]
     Active Substance: POLYETHYLENE GLYCOL 3350
     Indication: CONSTIPATION
     Dosage: UNK, UNKNOWN
     Route: 048
     Dates: start: 2012
  2. MIRALAX [Suspect]
     Active Substance: POLYETHYLENE GLYCOL 3350
     Dosage: 17 G, QD
     Route: 048
     Dates: start: 201204, end: 201406

REACTIONS (8)
  - Weight fluctuation [Not Recovered/Not Resolved]
  - Erythema [Recovered/Resolved]
  - Upper-airway cough syndrome [Recovered/Resolved]
  - Hair texture abnormal [Not Recovered/Not Resolved]
  - Facial pain [Recovered/Resolved]
  - Rash erythematous [Recovered/Resolved]
  - Incorrect drug administration duration [Unknown]
  - Off label use [Unknown]

NARRATIVE: CASE EVENT DATE: 201404
